FAERS Safety Report 14117357 (Version 1)
Quarter: 2017Q4

REPORT INFORMATION
  Report Type: Spontaneous
  Country: US (occurrence: US)
  Receive Date: 20171023
  Receipt Date: 20171023
  Transmission Date: 20180321
  Serious: No
  Sender: FDA-Public Use
  Company Number: US-ALLERGAN-1706121US

PATIENT
  Sex: Female
  Weight: 114.29 kg

DRUGS (1)
  1. LINZESS [Suspect]
     Active Substance: LINACLOTIDE
     Indication: PRODUCT USED FOR UNKNOWN INDICATION
     Dosage: 145 ?G, UNK
     Route: 065

REACTIONS (4)
  - Constipation [Unknown]
  - Faeces hard [Unknown]
  - Bowel movement irregularity [Unknown]
  - Abdominal pain [Unknown]
